FAERS Safety Report 13974365 (Version 3)
Quarter: 2017Q4

REPORT INFORMATION
  Report Type: Spontaneous
  Country: US (occurrence: US)
  Receive Date: 20170915
  Receipt Date: 20171004
  Transmission Date: 20180321
  Serious: Yes (Other)
  Sender: FDA-Public Use
  Company Number: US-TEVA-805547USA

PATIENT

DRUGS (2)
  1. REMICADE [Concomitant]
     Active Substance: INFLIXIMAB
  2. PREDNISONE. [Suspect]
     Active Substance: PREDNISONE
     Route: 065

REACTIONS (8)
  - Malaise [Unknown]
  - Condition aggravated [Unknown]
  - Depression [Unknown]
  - General physical health deterioration [Unknown]
  - Seasonal allergy [Unknown]
  - Depressed mood [Unknown]
  - Ear infection [Unknown]
  - Feeling abnormal [Unknown]
